FAERS Safety Report 8235999-9 (Version None)
Quarter: 2012Q1

REPORT INFORMATION
  Report Type: 
  Country: None (occurrence: None)
  Receive Date: 20120326
  Receipt Date: 20120322
  Transmission Date: 20120608
  Serious: Yes (Death, Hospitalization)
  Sender: FDA-Public Use
  Company Number: IE-ASTRAZENECA-2012SE19536

PATIENT
  Age: 62 Year
  Sex: Female

DRUGS (1)
  1. VIMOVO [Suspect]
     Indication: BACK PAIN
     Route: 048

REACTIONS (2)
  - INTESTINAL PERFORATION [None]
  - DEATH [None]
